FAERS Safety Report 24931947 (Version 3)
Quarter: 2025Q3

REPORT INFORMATION
  Report Type: Spontaneous
  Country: US (occurrence: US)
  Receive Date: 20250205
  Receipt Date: 20250717
  Transmission Date: 20251020
  Serious: No
  Sender: SANOFI AVENTIS
  Company Number: US-SA-2025SA033859

PATIENT
  Age: 59 Year
  Sex: Male

DRUGS (1)
  1. DUPIXENT [Suspect]
     Active Substance: DUPILUMAB
     Indication: Nasal polyps
     Dosage: 300 MG, QOW
     Route: 058
     Dates: start: 20240615

REACTIONS (8)
  - Nasal polyps [Unknown]
  - Condition aggravated [Unknown]
  - Nasal congestion [Unknown]
  - Condition aggravated [Unknown]
  - Productive cough [Unknown]
  - Sputum discoloured [Unknown]
  - Condition aggravated [Unknown]
  - Viral infection [Unknown]

NARRATIVE: CASE EVENT DATE: 20250601
